FAERS Safety Report 25190501 (Version 1)
Quarter: 2025Q2

REPORT INFORMATION
  Report Type: Report from Study
  Country: US (occurrence: US)
  Receive Date: 20250411
  Receipt Date: 20250411
  Transmission Date: 20250717
  Serious: Yes (Other)
  Sender: ABBVIE
  Company Number: US-ABBVIE-6213625

PATIENT
  Age: 35 Year
  Sex: Male

DRUGS (3)
  1. HUMIRA [Suspect]
     Active Substance: ADALIMUMAB
     Indication: Sarcoidosis
     Route: 058
     Dates: start: 2020
  2. VYVANSE [Concomitant]
     Active Substance: LISDEXAMFETAMINE DIMESYLATE
     Indication: Attention deficit hyperactivity disorder
  3. ELIQUIS [Concomitant]
     Active Substance: APIXABAN
     Indication: Product used for unknown indication

REACTIONS (6)
  - Renal infarct [Unknown]
  - Off label use [Unknown]
  - Sarcoidosis [Unknown]
  - Eye pain [Unknown]
  - Optic neuritis [Unknown]
  - Migraine [Unknown]

NARRATIVE: CASE EVENT DATE: 20250101
